FAERS Safety Report 17567798 (Version 1)
Quarter: 2020Q1

REPORT INFORMATION
  Report Type: Spontaneous
  Country: GB (occurrence: GB)
  Receive Date: 20200320
  Receipt Date: 20200320
  Transmission Date: 20200409
  Serious: Yes (Other)
  Sender: FDA-Public Use
  Company Number: NVSC2020GB001598

PATIENT
  Age: 80 Year
  Sex: Female

DRUGS (4)
  1. FLUCLOXACILLIN [Interacting]
     Active Substance: FLUCLOXACILLIN
     Indication: ABSCESS LIMB
  2. PARACETAMOL [Suspect]
     Active Substance: ACETAMINOPHEN
     Indication: CELLULITIS
     Dosage: UNK
     Route: 065
  3. FLUCLOXACILLIN [Interacting]
     Active Substance: FLUCLOXACILLIN
     Indication: CELLULITIS
     Dosage: UNK UNK, TIW
     Route: 042
  4. PARACETAMOL [Interacting]
     Active Substance: ACETAMINOPHEN
     Indication: ABSCESS LIMB

REACTIONS (5)
  - Drug interaction [Unknown]
  - Pyroglutamate increased [Recovered/Resolved]
  - Hypokalaemia [Recovered/Resolved]
  - Metabolic acidosis [Recovered/Resolved]
  - Acidosis [Recovered/Resolved]
